FAERS Safety Report 10133303 (Version 1)
Quarter: 2014Q2

REPORT INFORMATION
  Report Type: Spontaneous
  Country: US (occurrence: US)
  Receive Date: 20140428
  Receipt Date: 20140428
  Transmission Date: 20141212
  Serious: No
  Sender: FDA-Public Use
  Company Number: US-PFIZER INC-2014115092

PATIENT
  Sex: Female

DRUGS (2)
  1. TOVIAZ [Suspect]
     Dosage: 4 MG, UNK
     Dates: start: 201404
  2. CAFFEINE [Suspect]
     Dosage: UNK

REACTIONS (2)
  - Urinary incontinence [Unknown]
  - Somnolence [Unknown]
